FAERS Safety Report 5350403-6 (Version None)
Quarter: 2007Q2

REPORT INFORMATION
  Report Type: 
  Country: None (occurrence: None)
  Receive Date: 20070605
  Receipt Date: 20070605
  Transmission Date: 20071010
  Serious: No
  Sender: FDA-Public Use
  Company Number: None

PATIENT
  Age: 60 Year
  Sex: Male
  Weight: 57.1532 kg

DRUGS (1)
  1. PREDNISONE [Suspect]
     Indication: RENAL TRANSPLANT
     Dates: start: 20060810, end: 20070604

REACTIONS (2)
  - OSTEONECROSIS [None]
  - OSTEOPOROSIS [None]
